FAERS Safety Report 5713665-9 (Version None)
Quarter: 2008Q2

REPORT INFORMATION
  Report Type: 
  Country: None (occurrence: None)
  Receive Date: 20080418
  Receipt Date: 20080403
  Transmission Date: 20081010
  Serious: Yes (Other)
  Sender: FDA-Public Use
  Company Number: 8030812

PATIENT
  Age: 38 Year
  Sex: Female

DRUGS (6)
  1. FUROSEMIDE [Suspect]
     Dosage: 80 MG 2/D
  2. ALBUTEROL [Suspect]
     Indication: ASTHMA
     Dosage: INH
     Route: 055
  3. ALBUTEROL [Suspect]
     Indication: RESPIRATORY RATE DECREASED
     Dosage: INH
     Route: 055
  4. PREDNISOLONE [Suspect]
     Indication: ASTHMA
     Dosage: PO
     Route: 048
  5. ASPIRIN [Suspect]
  6. ENOXAPARIN SODIUM [Suspect]

REACTIONS (27)
  - AKINESIA [None]
  - ANXIETY [None]
  - BLOOD PRESSURE DECREASED [None]
  - BLOOD PRESSURE SYSTOLIC ABNORMAL [None]
  - BUNDLE BRANCH BLOCK [None]
  - CAESAREAN SECTION [None]
  - CARDIAC DISORDER [None]
  - CARDIAC FUNCTION TEST ABNORMAL [None]
  - CARDIOMYOPATHY [None]
  - COMPLICATION OF PREGNANCY [None]
  - DILATATION VENTRICULAR [None]
  - DISEASE PROGRESSION [None]
  - DIZZINESS [None]
  - DRUG EXPOSURE DURING PREGNANCY [None]
  - DYSKINESIA [None]
  - ELECTROCARDIOGRAM QRS COMPLEX PROLONGED [None]
  - EMOTIONAL DISTRESS [None]
  - EPIGASTRIC DISCOMFORT [None]
  - HEART RATE INCREASED [None]
  - HEART TRANSPLANT [None]
  - INTRACARDIAC THROMBUS [None]
  - MITRAL VALVE INCOMPETENCE [None]
  - NAUSEA [None]
  - PERIPARTUM CARDIOMYOPATHY [None]
  - PREGNANCY [None]
  - TACHYCARDIA [None]
  - TRICUSPID VALVE INCOMPETENCE [None]
